FAERS Safety Report 5297734-6 (Version None)
Quarter: 2007Q2

REPORT INFORMATION
  Report Type: 
  Country: None (occurrence: None)
  Receive Date: 20070412
  Receipt Date: 20070412
  Transmission Date: 20071010
  Serious: Yes (Death)
  Sender: FDA-Public Use
  Company Number: None

PATIENT
  Age: 87 Year
  Sex: Male
  Weight: 62.1428 kg

DRUGS (2)
  1. KEFLEX [Suspect]
     Indication: PNEUMONIA
     Dosage: 1 4 TIMES PO
     Route: 048
     Dates: start: 20060220, end: 20070319
  2. KEFLEX [Suspect]
     Indication: STREPTOCOCCAL INFECTION
     Dosage: 1 4 TIMES PO
     Route: 048
     Dates: start: 20060220, end: 20070319

REACTIONS (2)
  - PNEUMONIA ASPIRATION [None]
  - VOMITING [None]
